FAERS Safety Report 8501680-1 (Version None)
Quarter: 2012Q3

REPORT INFORMATION
  Report Type: 
  Country: None (occurrence: None)
  Receive Date: 20120711
  Receipt Date: 20120702
  Transmission Date: 20120928
  Serious: Yes (Hospitalization)
  Sender: FDA-Public Use
  Company Number: US-BIOGENIDEC-2012BI023430

PATIENT
  Sex: Male

DRUGS (1)
  1. AVONEX [Suspect]
     Indication: MULTIPLE SCLEROSIS
     Route: 030
     Dates: start: 19990427

REACTIONS (5)
  - COORDINATION ABNORMAL [None]
  - FATIGUE [None]
  - HEART VALVE REPLACEMENT [None]
  - POOR QUALITY SLEEP [None]
  - DEPRESSION [None]
